FAERS Safety Report 23427096 (Version 1)
Quarter: 2024Q1

REPORT INFORMATION
  Report Type: Spontaneous
  Country: US (occurrence: None)
  Receive Date: 20240119
  Receipt Date: 20240119
  Transmission Date: 20240410
  Serious: Yes (Other)
  Sender: FDA-Public Use
  Company Number: None

PATIENT
  Sex: Male

DRUGS (43)
  1. HUMIRA [Suspect]
     Active Substance: ADALIMUMAB
     Indication: Psoriasis
     Dosage: OTHER QUANTITY : 40 MG/0.4ML;?
     Route: 058
     Dates: start: 20211030
  2. ARTH PAIN CRE [Concomitant]
  3. ATORVASTATIN [Concomitant]
     Active Substance: ATORVASTATIN
  4. AZITHROMYCIN [Concomitant]
     Active Substance: AZITHROMYCIN
  5. CALC ACETATE [Concomitant]
  6. CALC ANTACID [Concomitant]
  7. CALCIP/BETAM [Concomitant]
  8. CALCIPOTRIEN [Concomitant]
  9. CALCITRIOL [Concomitant]
     Active Substance: CALCITRIOL
  10. CHLORHEXIDINE GLUCONATE [Concomitant]
     Active Substance: CHLORHEXIDINE GLUCONATE
  11. CLOBETASOL [Concomitant]
     Active Substance: CLOBETASOL
  12. CYCLOBENZAPRINE [Concomitant]
     Active Substance: CYCLOBENZAPRINE
  13. FAMOTIDINE [Concomitant]
     Active Substance: FAMOTIDINE
  14. FLUTICASONE [Concomitant]
     Active Substance: FLUTICASONE
  15. FUROSEMIDE [Concomitant]
     Active Substance: FUROSEMIDE
  16. GABAPENTIN [Concomitant]
     Active Substance: GABAPENTIN
  17. GENGRAF [Concomitant]
     Active Substance: CYCLOSPORINE
  18. GLIPIZIDE [Concomitant]
     Active Substance: GLIPIZIDE
  19. INVOKANA [Concomitant]
     Active Substance: CANAGLIFLOZIN
  20. JANUVIA [Concomitant]
     Active Substance: SITAGLIPTIN PHOSPHATE
  21. LANTUS SOLOS [Concomitant]
  22. LIDOCAINE [Concomitant]
  23. LOPERAMIDE [Concomitant]
  24. LOSARTAN POTASSIUM [Concomitant]
     Active Substance: LOSARTAN POTASSIUM
  25. HYDROCHLOROTHIAZIDE\LOSARTAN POTASSIUM [Concomitant]
     Active Substance: HYDROCHLOROTHIAZIDE\LOSARTAN POTASSIUM
  26. METFORMIN [Concomitant]
     Active Substance: METFORMIN HYDROCHLORIDE
  27. METOPROL SUC [Concomitant]
  28. MYCOPHENOLATE MOFETIL [Concomitant]
     Active Substance: MYCOPHENOLATE MOFETIL
  29. NIFEDIPINE [Concomitant]
     Active Substance: NIFEDIPINE
  30. NOVOLOG [Concomitant]
     Active Substance: INSULIN ASPART
  31. OXYCODONE AND ACETAMINOPHEN [Concomitant]
     Active Substance: ACETAMINOPHEN\OXYCODONE HYDROCHLORIDE
  32. PANTOPRAZOLE [Concomitant]
     Active Substance: PANTOPRAZOLE
  33. PHOSPHA [Concomitant]
  34. POTASSIUM CHLORIDE [Concomitant]
     Active Substance: POTASSIUM CHLORIDE
  35. PREDNISONE [Concomitant]
     Active Substance: PREDNISONE
  36. PRODIGEN [Concomitant]
  37. PROMETHAZINE [Concomitant]
     Active Substance: PROMETHAZINE HYDROCHLORIDE
  38. SEMGLEE [Concomitant]
  39. SUCRALFATE [Concomitant]
     Active Substance: SUCRALFATE
  40. TACROLIMUS [Concomitant]
     Active Substance: TACROLIMUS
  41. TAMSULOSIN [Concomitant]
     Active Substance: TAMSULOSIN
  42. TRAMADOL HCL [Concomitant]
     Active Substance: TRAMADOL HYDROCHLORIDE
  43. VALGANCICLOV [Concomitant]

REACTIONS (1)
  - Renal transplant [None]
